FAERS Safety Report 7042431-X (Version None)
Quarter: 2010Q4

REPORT INFORMATION
  Report Type: 
  Country: None (occurrence: None)
  Receive Date: 20101013
  Receipt Date: 20100419
  Transmission Date: 20110411
  Serious: No
  Sender: FDA-Public Use
  Company Number: US-ASTRAZENECA-2010SE17241

PATIENT
  Sex: Female
  Weight: 117.9 kg

DRUGS (1)
  1. SYMBICORT [Suspect]
     Indication: ASTHMA
     Dosage: 80/4.5 DIALY
     Route: 055

REACTIONS (2)
  - DRUG DOSE OMISSION [None]
  - INSOMNIA [None]
